FAERS Safety Report 10446911 (Version 1)
Quarter: 2014Q3

REPORT INFORMATION
  Report Type: Spontaneous
  Country: US (occurrence: None)
  Receive Date: 20140910
  Receipt Date: 20140910
  Transmission Date: 20150326
  Serious: Yes (Life-Threatening, Hospitalization)
  Sender: FDA-Public Use
  Company Number: None

PATIENT
  Age: 63 Year
  Sex: Male
  Weight: 113 kg

DRUGS (5)
  1. PRADAXA [Suspect]
     Active Substance: DABIGATRAN ETEXILATE MESYLATE
     Indication: ATRIAL FIBRILLATION
  2. MELOXICAM. [Concomitant]
     Active Substance: MELOXICAM
  3. ALLOPURINOL. [Concomitant]
     Active Substance: ALLOPURINOL
  4. PRAVASTATIN [Concomitant]
     Active Substance: PRAVASTATIN\PRAVASTATIN SODIUM
  5. SILDENAFIL [Concomitant]
     Active Substance: SILDENAFIL

REACTIONS (11)
  - Road traffic accident [None]
  - Haematuria [None]
  - Colon injury [None]
  - Metabolic acidosis [None]
  - Haemorrhagic anaemia [None]
  - Chest pain [None]
  - Acute respiratory failure [None]
  - Amnesia [None]
  - Splenic injury [None]
  - Retroperitoneal haematoma [None]
  - Splenic rupture [None]

NARRATIVE: CASE EVENT DATE: 20140826
